FAERS Safety Report 23285297 (Version 1)
Quarter: 2023Q4

REPORT INFORMATION
  Report Type: Spontaneous
  Country: JP (occurrence: None)
  Receive Date: 20231211
  Receipt Date: 20231211
  Transmission Date: 20240110
  Serious: Yes (Hospitalization, Other)
  Sender: FDA-Public Use
  Company Number: 2023A277170

PATIENT
  Age: 84 Year
  Sex: Male

DRUGS (6)
  1. DAPAGLIFLOZIN [Suspect]
     Active Substance: DAPAGLIFLOZIN
     Indication: Cardiac failure chronic
     Dosage: IN THE MORNING
     Route: 048
     Dates: start: 20230202
  2. PIMOBENDAN [Concomitant]
     Active Substance: PIMOBENDAN
     Dosage: IN THE MORNING AND EVENING
     Route: 048
     Dates: start: 20230202
  3. TELMISARTAN [Concomitant]
     Active Substance: TELMISARTAN
     Dosage: IN THE MORNING
     Route: 048
     Dates: start: 20230202
  4. TORSEMIDE [Concomitant]
     Active Substance: TORSEMIDE
     Dosage: IN THE MORNING
     Route: 048
     Dates: start: 20230202
  5. TOLVAPTAN OD [Concomitant]
     Dosage: IN THE MORNING
     Route: 048
     Dates: start: 20230202
  6. HERBALS [Concomitant]
     Active Substance: HERBALS
     Dosage: BEFORE MEALS
     Dates: start: 20230328

REACTIONS (1)
  - Cardiac failure [Recovering/Resolving]

NARRATIVE: CASE EVENT DATE: 20230101
